FAERS Safety Report 4945823-5 (Version None)
Quarter: 2006Q1

REPORT INFORMATION
  Report Type: 
  Country: None (occurrence: None)
  Receive Date: 20060117
  Receipt Date: 20050222
  Transmission Date: 20060701
  Serious: Yes (Hospitalization)
  Sender: FDA-Public Use
  Company Number: A03200500520

PATIENT
  Age: 80 Year
  Sex: Female

DRUGS (1)
  1. PLAVIX [Suspect]
     Indication: CATHETERISATION CARDIAC
     Dosage: LOADING DOSE (AMOUNT NOT PROVIDED) FOLLOWED BY 75 MG QD THEREAFTER - ORAL
     Route: 048
     Dates: start: 20050201, end: 20050201

REACTIONS (1)
  - ANGIONEUROTIC OEDEMA [None]
